FAERS Safety Report 7965106-9 (Version None)
Quarter: 2011Q4

REPORT INFORMATION
  Report Type: 
  Country: None (occurrence: None)
  Receive Date: 20111208
  Receipt Date: 20111130
  Transmission Date: 20120403
  Serious: Yes (Hospitalization)
  Sender: FDA-Public Use
  Company Number: ZA-JNJFOC-20110107457

PATIENT
  Sex: Female
  Weight: 86.6 kg

DRUGS (3)
  1. PALIPERIDONE [Suspect]
     Indication: SCHIZOPHRENIA
     Route: 030
     Dates: start: 20101125, end: 20101125
  2. PALIPERIDONE [Suspect]
     Route: 030
     Dates: start: 20101118, end: 20101118
  3. PALIPERIDONE [Suspect]
     Route: 030
     Dates: start: 20101228, end: 20101228

REACTIONS (2)
  - PSYCHOTIC DISORDER [None]
  - MAJOR DEPRESSION [None]
